FAERS Safety Report 7657126-9 (Version None)
Quarter: 2011Q3

REPORT INFORMATION
  Report Type: 
  Country: None (occurrence: None)
  Receive Date: 20110804
  Receipt Date: 20110323
  Transmission Date: 20111222
  Serious: No
  Sender: FDA-Public Use
  Company Number: US-GLAXOSMITHKLINE-A0919550A

PATIENT
  Age: 64 Year
  Sex: Female

DRUGS (6)
  1. PROVENTIL [Concomitant]
  2. LISINOPRIL AND HYDROCHLOROTHIAZIDE [Concomitant]
  3. ADVAIR DISKUS 100/50 [Suspect]
     Indication: ASTHMA
     Dosage: 2PUFF TWICE PER DAY
     Route: 055
     Dates: start: 20100903
  4. FLUTICASONE PROPIONATE [Concomitant]
  5. ALLEGRA [Concomitant]
  6. LOVASTATIN [Concomitant]

REACTIONS (3)
  - SKIN DISCOLOURATION [None]
  - RASH PRURITIC [None]
  - DRY SKIN [None]
